FAERS Safety Report 20488818 (Version 1)
Quarter: 2022Q1

REPORT INFORMATION
  Report Type: Spontaneous
  Country: BR (occurrence: None)
  Receive Date: 20220218
  Receipt Date: 20220218
  Transmission Date: 20220423
  Serious: Yes (Other)
  Sender: FDA-Public Use
  Company Number: BR-Orion Corporation ORION PHARMA-ENT 2022-0016

PATIENT
  Sex: Male

DRUGS (1)
  1. COMTAN [Suspect]
     Active Substance: ENTACAPONE
     Indication: Product used for unknown indication
     Route: 065

REACTIONS (1)
  - Drug dependence [Unknown]
